FAERS Safety Report 20010805 (Version 2)
Quarter: 2021Q4

REPORT INFORMATION
  Report Type: Spontaneous
  Country: US (occurrence: US)
  Receive Date: 20211028
  Receipt Date: 20211102
  Transmission Date: 20220303
  Serious: Yes (Other)
  Sender: FDA-Public Use
  Company Number: US-TEVA-2021-US-1968802

PATIENT
  Age: 58 Year
  Sex: Female

DRUGS (10)
  1. ALLOPURINOL [Suspect]
     Active Substance: ALLOPURINOL
     Indication: Crohn^s disease
     Route: 065
  2. LIDOCAINE [Suspect]
     Active Substance: LIDOCAINE
     Indication: Crohn^s disease
     Route: 065
  3. PREDNISONE [Suspect]
     Active Substance: PREDNISONE
     Indication: Crohn^s disease
     Route: 048
  4. PREDNISONE [Suspect]
     Active Substance: PREDNISONE
     Indication: Crohn^s disease
     Dosage: TAPERING
     Route: 048
  5. SULFASALAZINE [Suspect]
     Active Substance: SULFASALAZINE
     Indication: Crohn^s disease
     Route: 065
  6. MERCAPTOPURINE [Suspect]
     Active Substance: MERCAPTOPURINE
     Indication: Crohn^s disease
     Route: 065
  7. HUMAN IMMUNOGLOBULIN G [Suspect]
     Active Substance: HUMAN IMMUNOGLOBULIN G
     Indication: Crohn^s disease
     Route: 042
  8. DAPSONE [Suspect]
     Active Substance: DAPSONE
     Indication: Linear IgA disease
     Dosage: 50 MILLIGRAM DAILY;
     Route: 065
  9. DEXAMETHASONE [Concomitant]
     Active Substance: DEXAMETHASONE
     Indication: Mouth ulceration
     Route: 065
  10. CLOBETASOL [Concomitant]
     Active Substance: CLOBETASOL
     Indication: Vulval disorder
     Route: 061

REACTIONS (4)
  - Rebound effect [Unknown]
  - Drug ineffective [Unknown]
  - Dyspnoea [Unknown]
  - Crohn^s disease [Unknown]
